FAERS Safety Report 17077822 (Version 1)
Quarter: 2019Q4

REPORT INFORMATION
  Report Type: Spontaneous
  Country: US (occurrence: US)
  Receive Date: 20191126
  Receipt Date: 20191126
  Transmission Date: 20200122
  Serious: Yes (Other)
  Sender: FDA-Public Use
  Company Number: US-TEVA-2019-US-1141125

PATIENT
  Sex: Male

DRUGS (1)
  1. TENOFOVIR DISOPROXIL FUMARATE TABLETS [Suspect]
     Active Substance: TENOFOVIR DISOPROXIL FUMARATE
     Indication: HEPATITIS B
     Dosage: 300
     Route: 065
     Dates: start: 201801, end: 201905

REACTIONS (3)
  - Visual impairment [Unknown]
  - Optic neuropathy [Unknown]
  - Vision blurred [Unknown]

NARRATIVE: CASE EVENT DATE: 201812
